FAERS Safety Report 20495268 (Version 2)
Quarter: 2022Q1

REPORT INFORMATION
  Report Type: Spontaneous
  Country: CN (occurrence: CN)
  Receive Date: 20220221
  Receipt Date: 20220303
  Transmission Date: 20220423
  Serious: Yes (Other)
  Sender: FDA-Public Use
  Company Number: CN-SA-SAC20220211000832

PATIENT
  Sex: Male

DRUGS (1)
  1. FABRAZYME [Suspect]
     Active Substance: AGALSIDASE BETA
     Indication: Fabry^s disease
     Dosage: 1 DF (35MG / BOTTLE 1 VIAL, 5 VIAL OF 5 MG/BOTTLE)
     Route: 065

REACTIONS (5)
  - Loss of consciousness [Recovering/Resolving]
  - Hypersensitivity [Recovering/Resolving]
  - Pyrexia [Unknown]
  - Irritability [Recovering/Resolving]
  - Infusion related reaction [Unknown]
